FAERS Safety Report 6290957-9 (Version None)
Quarter: 2009Q3

REPORT INFORMATION
  Report Type: 
  Country: None (occurrence: None)
  Receive Date: 20090729
  Receipt Date: 20090729
  Transmission Date: 20100115
  Serious: Yes (Other)
  Sender: FDA-Public Use
  Company Number: None

PATIENT
  Age: 49 Year
  Sex: Male
  Weight: 89.8122 kg

DRUGS (3)
  1. TERAZOSIN HCL [Suspect]
     Indication: BENIGN PROSTATIC HYPERPLASIA
     Dosage: 1 MG DAILY PO
     Route: 048
  2. TERAZOSIN HCL [Suspect]
     Indication: BENIGN PROSTATIC HYPERPLASIA
     Dosage: 1 MG DAILY PO
     Route: 048
     Dates: start: 20090629, end: 20090728
  3. AVODART [Suspect]

REACTIONS (2)
  - BENIGN PROSTATIC HYPERPLASIA [None]
  - PRODUCT SUBSTITUTION ISSUE [None]
